FAERS Safety Report 24822447 (Version 1)
Quarter: 2025Q1

REPORT INFORMATION
  Report Type: Report from Study
  Country: US (occurrence: US)
  Receive Date: 20250108
  Receipt Date: 20250108
  Transmission Date: 20250408
  Serious: Yes (Other)
  Sender: ABBVIE
  Company Number: US-ABBVIE-6075095

PATIENT
  Age: 77 Year
  Sex: Female

DRUGS (3)
  1. VENCLEXTA [Suspect]
     Active Substance: VENETOCLAX
     Indication: Myelodysplastic syndrome
     Dosage: TOOK FOUR TABLETS OF 100 MG BY MOUTH DAILY WITH BREAKFAST
     Route: 048
     Dates: start: 2022, end: 20241223
  2. VENCLEXTA [Suspect]
     Active Substance: VENETOCLAX
     Indication: Myelodysplastic syndrome
     Dosage: TAKE ONE TABLET OF 100 MG BY MOUTH ON DAY ONE WITH BREAKFAST
     Route: 048
     Dates: start: 2022, end: 2022
  3. VENCLEXTA [Suspect]
     Active Substance: VENETOCLAX
     Indication: Myelodysplastic syndrome
     Dosage: TWO TABLETS OF 100 MG ON DAY TWO WITH BREAKFAST
     Route: 048
     Dates: start: 2022, end: 2022

REACTIONS (2)
  - Hospice care [Unknown]
  - Off label use [Unknown]

NARRATIVE: CASE EVENT DATE: 20241223
